FAERS Safety Report 9339889 (Version 1)
Quarter: 2013Q2

REPORT INFORMATION
  Report Type: Spontaneous
  Country: US (occurrence: US)
  Receive Date: 20130610
  Receipt Date: 20130610
  Transmission Date: 20140414
  Serious: Yes (Other)
  Sender: FDA-Public Use
  Company Number: US-ASTELLAS-2013US003755

PATIENT
  Age: 73 Year
  Sex: Male

DRUGS (1)
  1. XTANDI [Suspect]
     Indication: PROSTATE CANCER
     Dosage: 160 MG, UID/QD
     Route: 048
     Dates: start: 20121009, end: 20130305

REACTIONS (6)
  - Drug ineffective [Unknown]
  - Prostatic specific antigen increased [Unknown]
  - Abdominal discomfort [Unknown]
  - Aphagia [Unknown]
  - Weight decreased [Unknown]
  - Constipation [Unknown]
